FAERS Safety Report 25245537 (Version 1)
Quarter: 2025Q2

REPORT INFORMATION
  Report Type: Spontaneous
  Country: US (occurrence: None)
  Receive Date: 20250427
  Receipt Date: 20250427
  Transmission Date: 20250716
  Serious: Yes (unspecified)
  Sender: FDA-CTU
  Company Number: None

PATIENT
  Age: 43 Year
  Sex: Female
  Weight: 135 kg

DRUGS (14)
  1. RINVOQ [Suspect]
     Active Substance: UPADACITINIB
     Indication: Ankylosing spondylitis
     Dosage: 1 TABLET DAILY ORAL
     Route: 048
     Dates: start: 20230601, end: 20250303
  2. METHOTREXATE [Concomitant]
     Active Substance: METHOTREXATE
  3. QULIPTA [Concomitant]
     Active Substance: ATOGEPANT
  4. CARVEDILOL [Concomitant]
     Active Substance: CARVEDILOL
  5. SULFASALAZINE [Concomitant]
     Active Substance: SULFASALAZINE
  6. AMLODIPINE [Concomitant]
     Active Substance: AMLODIPINE BESYLATE
  7. NEURONTIN [Concomitant]
     Active Substance: GABAPENTIN
  8. FOLIC ACID [Concomitant]
     Active Substance: FOLIC ACID
  9. VITAMINS [Concomitant]
     Active Substance: VITAMINS
  10. D3+K [Concomitant]
  11. Allergy meds [Concomitant]
  12. TYLENOL [Concomitant]
     Active Substance: ACETAMINOPHEN
  13. ALEVE [Concomitant]
     Active Substance: NAPROXEN SODIUM
  14. LACTASE [Concomitant]
     Active Substance: LACTASE

REACTIONS (2)
  - Uterine haemorrhage [None]
  - Ovarian cyst [None]

NARRATIVE: CASE EVENT DATE: 20231101
